FAERS Safety Report 17782151 (Version 1)
Quarter: 2020Q2

REPORT INFORMATION
  Report Type: Spontaneous
  Country: DE (occurrence: DE)
  Receive Date: 20200513
  Receipt Date: 20200513
  Transmission Date: 20200714
  Serious: Yes (Other)
  Sender: FDA-Public Use
  Company Number: DE-ASTRAZENECA-2020SE53913

PATIENT
  Age: 590 Month
  Sex: Male
  Weight: 66 kg

DRUGS (2)
  1. DURVALUMAB. [Suspect]
     Active Substance: DURVALUMAB
     Indication: ILL-DEFINED DISORDER
     Dosage: 150.0MG UNKNOWN
     Route: 042
     Dates: start: 20200403
  2. TREMELIMUMAB. [Concomitant]
     Active Substance: TREMELIMUMAB
     Route: 042
     Dates: start: 20200403

REACTIONS (2)
  - Off label use [Not Recovered/Not Resolved]
  - Asymptomatic COVID-19 [Not Recovered/Not Resolved]

NARRATIVE: CASE EVENT DATE: 20200420
